FAERS Safety Report 4866773-9 (Version None)
Quarter: 2005Q4

REPORT INFORMATION
  Report Type: 
  Country: None (occurrence: None)
  Receive Date: 20051221
  Receipt Date: 20051212
  Transmission Date: 20060501
  Serious: Yes (Death, Hospitalization)
  Sender: FDA-Public Use
  Company Number: 2005-11-1546

PATIENT
  Age: 77 Year
  Sex: Male

DRUGS (11)
  1. RINDERON [Suspect]
     Indication: BRAIN OEDEMA
     Dosage: 2-4 MG ORAL; 4 MG, ORAL; 3 MG ORAL; 2MG ORAL
     Route: 048
     Dates: start: 20050708, end: 20050725
  2. RINDERON [Suspect]
     Indication: BRAIN OEDEMA
     Dosage: 2-4 MG ORAL; 4 MG, ORAL; 3 MG ORAL; 2MG ORAL
     Route: 048
     Dates: start: 20050725, end: 20050728
  3. RINDERON [Suspect]
     Indication: BRAIN OEDEMA
     Dosage: 2-4 MG ORAL; 4 MG, ORAL; 3 MG ORAL; 2MG ORAL
     Route: 048
     Dates: start: 20050708, end: 20050808
  4. RINDERON [Suspect]
     Indication: BRAIN OEDEMA
     Dosage: 2-4 MG ORAL; 4 MG, ORAL; 3 MG ORAL; 2MG ORAL
     Route: 048
     Dates: start: 20050728, end: 20050808
  5. RADIATION THERAPY [Concomitant]
  6. CHEMOTHERAPY REGIMENS [Concomitant]
  7. LORNOXICAM (CHLOROTENOXIPAM) [Concomitant]
  8. TIZANIDINE HYDROCHOLORIDE [Concomitant]
  9. LORMETAZEPAM [Concomitant]
  10. BUSCOPAN [Concomitant]
  11. FAMOTIDINE [Concomitant]

REACTIONS (2)
  - PNEUMONIA LEGIONELLA [None]
  - PULMONARY TUBERCULOSIS [None]
